FAERS Safety Report 21493133 (Version 2)
Quarter: 2022Q4

REPORT INFORMATION
  Report Type: Spontaneous
  Country: US (occurrence: None)
  Receive Date: 20221021
  Receipt Date: 20221209
  Transmission Date: 20230113
  Serious: Yes (Other)
  Sender: FDA-Public Use
  Company Number: 2022A347513

PATIENT
  Age: 24200 Day
  Sex: Female
  Weight: 72.6 kg

DRUGS (1)
  1. FASENRA [Suspect]
     Active Substance: BENRALIZUMAB
     Indication: Asthma
     Route: 058
     Dates: start: 2021

REACTIONS (6)
  - Pulmonary fibrosis [Unknown]
  - Pulmonary granuloma [Unknown]
  - Dysphonia [Unknown]
  - Intentional product use issue [Unknown]
  - Drug effect less than expected [Unknown]
  - Device malfunction [Unknown]

NARRATIVE: CASE EVENT DATE: 20220921
